FAERS Safety Report 24216056 (Version 1)
Quarter: 2024Q3

REPORT INFORMATION
  Report Type: Spontaneous
  Country: US (occurrence: None)
  Receive Date: 20240816
  Receipt Date: 20240816
  Transmission Date: 20241017
  Serious: No
  Sender: ASTRAZENECA
  Company Number: 2024A177687

PATIENT
  Sex: Female

DRUGS (3)
  1. ROSUVASTATIN CALCIUM [Interacting]
     Active Substance: ROSUVASTATIN CALCIUM
     Dosage: S40 MG BY MOUTH DAILY.
     Route: 048
  2. TAFAMIDIS [Interacting]
     Active Substance: TAFAMIDIS
     Dosage: 1 CAPSULE BY MOUTH DAILY (WITH BREAKFAST).
     Route: 048
  3. GABAPENTIN [Suspect]
     Active Substance: GABAPENTIN
     Dosage: 1 CAPSULE BY MOUTH IN THE MORNING AND 1 CAPSULE IN THE EVENING.
     Route: 048

REACTIONS (2)
  - Drug interaction [Unknown]
  - Overdose [Unknown]
